FAERS Safety Report 7845242-8 (Version None)
Quarter: 2011Q4

REPORT INFORMATION
  Report Type: 
  Country: None (occurrence: None)
  Receive Date: 20111025
  Receipt Date: 20111019
  Transmission Date: 20120403
  Serious: Yes (Hospitalization)
  Sender: FDA-Public Use
  Company Number: CA-ABBOTT-11P-028-0715909-00

PATIENT
  Sex: Female
  Weight: 76.272 kg

DRUGS (5)
  1. ATIVAN [Concomitant]
     Indication: INSOMNIA
     Route: 048
     Dates: start: 20100901
  2. ANXIOLYTICS [Concomitant]
     Indication: ANXIETY
     Dates: start: 20110201, end: 20110901
  3. HUMIRA [Suspect]
     Indication: CROHN'S DISEASE
     Route: 058
     Dates: start: 20101129
  4. VITAMIN D [Concomitant]
     Indication: VITAMIN SUPPLEMENTATION
     Route: 048
     Dates: start: 20010101
  5. CALCIUM CARBONATE [Concomitant]
     Indication: MINERAL SUPPLEMENTATION
     Route: 048
     Dates: start: 20010101

REACTIONS (3)
  - STRESS [None]
  - NAUSEA [None]
  - DEPRESSION [None]
